FAERS Safety Report 4606140-6 (Version None)
Quarter: 2005Q1

REPORT INFORMATION
  Report Type: 
  Country: None (occurrence: None)
  Receive Date: 20050303
  Receipt Date: 20041209
  Transmission Date: 20050727
  Serious: No
  Sender: FDA-Public Use
  Company Number: 200421146BWH

PATIENT
  Sex: Male

DRUGS (4)
  1. LEVITRA [Suspect]
     Dates: start: 20040101
  2. BENICAR [Concomitant]
  3. NIASPAN [Concomitant]
  4. ZETIA [Concomitant]

REACTIONS (1)
  - DRUG INEFFECTIVE [None]
